FAERS Safety Report 18227471 (Version 12)
Quarter: 2023Q1

REPORT INFORMATION
  Report Type: Other
  Country: CA (occurrence: None)
  Receive Date: 20200903
  Receipt Date: 20230306
  Transmission Date: 20230418
  Serious: Yes (Other)
  Sender: FDA-Public Use
  Company Number: CA-ROCHE-2655777

PATIENT
  Age: 30 Year
  Sex: Female
  Weight: 89.7 kg

DRUGS (5)
  1. OCREVUS [Suspect]
     Active Substance: OCRELIZUMAB
     Indication: Relapsing-remitting multiple sclerosis
     Dosage: 300 MG AT DAY 0 AND 14, THEN 600 MG EVERY 6 MONTH?ON 27/JUL/2022, SHE RECEIVED SUBSEQUENT DOSE OF OC
     Route: 042
     Dates: start: 20180604
  2. OCREVUS [Suspect]
     Active Substance: OCRELIZUMAB
     Dosage: 300 MG AT DAY 0 AND 14, THEN 600 MG EVERY 6 MONTH?ON 27/JUL/2022, SHE RECEIVED SUBSEQUENT DOSE OF OC
     Route: 042
     Dates: start: 20220727
  3. GRAVOL [Concomitant]
     Active Substance: DIMENHYDRINATE
  4. TYLENOL [Concomitant]
     Active Substance: ACETAMINOPHEN
     Route: 067
  5. SOLU-MEDROL [Concomitant]
     Active Substance: METHYLPREDNISOLONE SODIUM SUCCINATE
     Route: 042

REACTIONS (14)
  - Polycystic ovaries [Not Recovered/Not Resolved]
  - Major depression [Not Recovered/Not Resolved]
  - Genital herpes [Not Recovered/Not Resolved]
  - Hair disorder [Recovered/Resolved]
  - Fall [Unknown]
  - Muscular weakness [Not Recovered/Not Resolved]
  - Muscle strain [Not Recovered/Not Resolved]
  - Vibratory sense increased [Not Recovered/Not Resolved]
  - Asthenia [Not Recovered/Not Resolved]
  - Gait disturbance [Not Recovered/Not Resolved]
  - Confusional state [Not Recovered/Not Resolved]
  - General physical health deterioration [Not Recovered/Not Resolved]
  - Infusion related reaction [Recovering/Resolving]
  - Lymphocyte count abnormal [Unknown]

NARRATIVE: CASE EVENT DATE: 20180606
